FAERS Safety Report 10930000 (Version 1)
Quarter: 2015Q1

REPORT INFORMATION
  Report Type: Spontaneous
  Country: US (occurrence: None)
  Receive Date: 20150317
  Receipt Date: 20150317
  Transmission Date: 20150721
  Serious: Yes (Other)
  Sender: FDA-Public Use
  Company Number: US-ZYDUS-007095

PATIENT
  Age: 57 Year
  Sex: Female

DRUGS (4)
  1. FENTANYL (FENTANYL) [Suspect]
     Active Substance: FENTANYL
  2. OXYCODONE HCL [Suspect]
     Active Substance: OXYCODONE HYDROCHLORIDE
  3. CLOMIPRAMINE (CLOMIPRAMINE) [Suspect]
     Active Substance: CLOMIPRAMINE
  4. DULOXETINE (DULOXETINE) [Suspect]
     Active Substance: DULOXETINE

REACTIONS (1)
  - Serotonin syndrome [None]
